FAERS Safety Report 4299144-7 (Version None)
Quarter: 2004Q1

REPORT INFORMATION
  Report Type: 
  Country: None (occurrence: None)
  Receive Date: 20040217
  Receipt Date: 20040217
  Transmission Date: 20041129
  Serious: Yes (Life-Threatening)
  Sender: FDA-Public Use
  Company Number: None

PATIENT
  Age: 62 Year
  Sex: Male
  Weight: 79 kg

DRUGS (12)
  1. HEPARIN [Suspect]
     Indication: DEEP VENOUS THROMBOSIS PROPHYLAXIS
     Dosage: 5000 UNITS BID SUBCUTANEOUS
     Route: 058
     Dates: start: 20031030, end: 20031112
  2. METFORMIN HCL [Concomitant]
  3. ASPIRIN [Suspect]
  4. FLOMAX [Concomitant]
  5. LIPITOR [Concomitant]
  6. METOPROLOL [Concomitant]
  7. OS-CAL [Concomitant]
  8. PREDNISONE [Concomitant]
  9. ACTONEL [Concomitant]
  10. INSULIN [Concomitant]
  11. EPOGEN [Concomitant]
  12. CYTOXAN [Concomitant]

REACTIONS (1)
  - THROMBOCYTOPENIA [None]
